FAERS Safety Report 5690120-6 (Version None)
Quarter: 2008Q1

REPORT INFORMATION
  Report Type: 
  Country: None (occurrence: None)
  Receive Date: 20080331
  Receipt Date: 20080331
  Transmission Date: 20080703
  Serious: Yes (Life-Threatening, Other)
  Sender: FDA-Public Use
  Company Number: None

PATIENT
  Age: 24 Year
  Sex: Male
  Weight: 83.9154 kg

DRUGS (1)
  1. CHANTIX [Suspect]
     Indication: SMOKING CESSATION THERAPY
     Dosage: 2 PER DAY DAILY PO
     Route: 048
     Dates: start: 20080101, end: 20080302

REACTIONS (3)
  - ILL-DEFINED DISORDER [None]
  - PSYCHOTIC DISORDER [None]
  - SLEEP PHASE RHYTHM DISTURBANCE [None]
